FAERS Safety Report 20707600 (Version 3)
Quarter: 2022Q4

REPORT INFORMATION
  Report Type: Spontaneous
  Country: US (occurrence: None)
  Receive Date: 20220413
  Receipt Date: 20221005
  Transmission Date: 20230113
  Serious: Yes (Congenital Anomaly)
  Sender: FDA-Public Use
  Company Number: US-ROCHE-3064680

PATIENT
  Sex: Male

DRUGS (1)
  1. OCREVUS [Suspect]
     Active Substance: OCRELIZUMAB
     Indication: Product used for unknown indication
     Dosage: RECEIVED NEXT DOSE OF OCRELIZUMAB ON 25/JAN/2021
     Route: 064
     Dates: start: 20210111

REACTIONS (2)
  - Congenital musculoskeletal disorder [Unknown]
  - Foetal exposure during pregnancy [Unknown]
